FAERS Safety Report 8317803-3 (Version None)
Quarter: 2012Q2

REPORT INFORMATION
  Report Type: 
  Country: None (occurrence: None)
  Receive Date: 20120427
  Receipt Date: 20120418
  Transmission Date: 20120825
  Serious: Yes (Hospitalization)
  Sender: FDA-Public Use
  Company Number: US-BAYER-2011-123823

PATIENT
  Age: 43 Year
  Sex: Female
  Weight: 97.506 kg

DRUGS (14)
  1. AZITHROMYCIN [Concomitant]
     Dosage: 250 MG, UNK
     Route: 048
     Dates: start: 20070529
  2. HYDROCODONE BITARTRATE AND ACETAMINOPHEN [Concomitant]
     Indication: MIGRAINE
     Dosage: 10-500 MG
     Route: 048
     Dates: start: 20070504, end: 20070813
  3. STRATTERA [Concomitant]
     Dosage: 40 MG, UNK
     Route: 048
     Dates: start: 20070627, end: 20070830
  4. BUTORPHANOL TARTRATE [Concomitant]
     Indication: MIGRAINE
     Dosage: 10 MG/ML, UNK
     Route: 048
     Dates: start: 20070504
  5. CEPHALEXIN [Concomitant]
     Dosage: 500 MG, UNK
     Route: 048
     Dates: start: 20070725
  6. CYCLOBENZAPRINE [Concomitant]
     Dosage: 10 MG, UNK
     Route: 048
     Dates: start: 20070516, end: 20070831
  7. PROVIGIL [Concomitant]
     Dosage: 200 MG, UNK
     Route: 048
     Dates: start: 20070504
  8. YAZ [Suspect]
     Dosage: UNK
     Route: 048
     Dates: start: 20070101, end: 20070501
  9. DEPAKOTE ER [Concomitant]
     Dosage: 500 MG, UNK
     Route: 048
     Dates: start: 20070504
  10. RELPAX [Concomitant]
     Dosage: 40 MG, UNK
     Route: 048
     Dates: start: 20070507, end: 20070811
  11. LEVOTHYROXINE SODIUM [Concomitant]
     Dosage: 150 MCG
     Route: 048
     Dates: start: 20070504
  12. METOPROLOL TARTRATE [Concomitant]
     Dosage: 25 MG, UNK
     Route: 048
     Dates: start: 20070510
  13. LEXAPRO [Concomitant]
     Dosage: 10 MG, UNK
     Route: 048
     Dates: start: 20070510, end: 20070817
  14. MELOXICAM [Concomitant]
     Dosage: 15 MG, UNK
     Route: 048
     Dates: start: 20070516

REACTIONS (7)
  - CHOLELITHIASIS [None]
  - INJURY [None]
  - GENERAL PHYSICAL HEALTH DETERIORATION [None]
  - ANXIETY [None]
  - EMOTIONAL DISTRESS [None]
  - CHOLECYSTITIS CHRONIC [None]
  - PAIN [None]
